FAERS Safety Report 8620292-2 (Version None)
Quarter: 2012Q3

REPORT INFORMATION
  Report Type: 
  Country: None (occurrence: None)
  Receive Date: 20120824
  Receipt Date: 20120813
  Transmission Date: 20120928
  Serious: Yes (Hospitalization, Other)
  Sender: FDA-Public Use
  Company Number: IN-B.I. PHARMACEUTICALS,INC./RIDGEFIELD-2012-EU-04222GL

PATIENT
  Age: 58 Year
  Sex: Female

DRUGS (7)
  1. ACECLOFENAC [Suspect]
     Indication: ARTHRALGIA
     Route: 065
  2. ACETAMINOPHEN [Suspect]
     Indication: ARTHRALGIA
     Route: 065
  3. LITHIUM CARBONATE [Suspect]
     Indication: BIPOLAR DISORDER
     Dosage: 600 MG
     Route: 065
  4. TELMISARTAN [Concomitant]
  5. QUETIAPINE [Concomitant]
  6. TELMISARTAN/HYDROCHLOROTHIAZIDE [Suspect]
     Indication: HYPERTENSION
     Route: 065
  7. LEVOTHYROXINE SODIUM [Concomitant]

REACTIONS (12)
  - TREMOR [None]
  - BLOOD CREATININE ABNORMAL [None]
  - SOMNOLENCE [None]
  - GAIT DISTURBANCE [None]
  - ATAXIA [None]
  - INSOMNIA [None]
  - TOXICITY TO VARIOUS AGENTS [None]
  - DRUG INTERACTION [None]
  - ALBUMIN URINE PRESENT [None]
  - BLOOD UREA ABNORMAL [None]
  - DYSARTHRIA [None]
  - HYPOTHYROIDISM [None]
